FAERS Safety Report 8504883 (Version 9)
Quarter: 2015Q3

REPORT INFORMATION
  Report Type: Spontaneous
  Country: US (occurrence: US)
  Receive Date: 20120411
  Receipt Date: 20150713
  Transmission Date: 20151125
  Serious: Yes (Hospitalization, Disabling, Other)
  Sender: FDA-Public Use
  Company Number: US-009507513-1204USA00487

PATIENT
  Sex: Female

DRUGS (4)
  1. FOSAMAX PLUS D [Suspect]
     Active Substance: ALENDRONATE SODIUM\CHOLECALCIFEROL
     Indication: OSTEOPOROSIS
     Dosage: UNK
     Route: 048
     Dates: start: 1995
  2. ALENDRONATE SODIUM. [Suspect]
     Active Substance: ALENDRONATE SODIUM
     Indication: OSTEOPOROSIS
     Dosage: 70 MG, QW
     Route: 048
     Dates: start: 20080719, end: 201110
  3. ALENDRONATE SODIUM. [Suspect]
     Active Substance: ALENDRONATE SODIUM
     Indication: OSTEOPOROSIS
     Dosage: UNK
     Route: 048
     Dates: start: 1995, end: 201110
  4. FOSAMAX [Suspect]
     Active Substance: ALENDRONATE SODIUM
     Indication: OSTEOPOROSIS
     Dosage: 70 MG, QW
     Route: 048
     Dates: start: 1995, end: 200807

REACTIONS (29)
  - Bone density decreased [Not Recovered/Not Resolved]
  - Femur fracture [Unknown]
  - Oestrogen deficiency [Unknown]
  - Bone scan abnormal [Unknown]
  - Intestinal obstruction [Unknown]
  - Body height decreased [Unknown]
  - Atelectasis [Unknown]
  - Atrial flutter [Unknown]
  - Gastrooesophageal reflux disease [Unknown]
  - Peripheral swelling [Unknown]
  - Fall [Unknown]
  - Bone disorder [Not Recovered/Not Resolved]
  - Hypercholesterolaemia [Unknown]
  - Polyarthritis [Unknown]
  - Stress fracture [Unknown]
  - Pulmonary embolism [Unknown]
  - Pleural effusion [Unknown]
  - Oesophagitis [Unknown]
  - Exostosis [Unknown]
  - Insulin-requiring type 2 diabetes mellitus [Unknown]
  - Overdose [Unknown]
  - Bone scan abnormal [Unknown]
  - Osteopenia [Unknown]
  - Osteoarthritis [Unknown]
  - Ileus [Recovering/Resolving]
  - International normalised ratio increased [Unknown]
  - Femur fracture [Recovering/Resolving]
  - Hypertension [Unknown]
  - Stress fracture [Unknown]

NARRATIVE: CASE EVENT DATE: 1995
